FAERS Safety Report 6329859-8 (Version None)
Quarter: 2009Q3

REPORT INFORMATION
  Report Type: 
  Country: None (occurrence: None)
  Receive Date: 20090826
  Receipt Date: 20090810
  Transmission Date: 20100115
  Serious: Yes (Other)
  Sender: FDA-Public Use
  Company Number: PHHY2009CA31016

PATIENT
  Sex: Male

DRUGS (11)
  1. EXJADE [Suspect]
     Indication: MYELOFIBROSIS
     Dosage: 1000 MG, QD
     Route: 048
  2. EXJADE [Suspect]
     Indication: IRON OVERLOAD
     Dosage: 500 MG, QD
     Route: 048
     Dates: start: 20090101
  3. FUROSEMIDE [Concomitant]
  4. ANTIHYPERTENSIVES [Concomitant]
  5. METFORMIN HCL [Concomitant]
  6. DIABETA [Concomitant]
     Dosage: UNK
  7. ALTACE [Concomitant]
     Dosage: UNK
  8. FUROSEMIDE [Concomitant]
  9. FLUVOXAMINE MALEATE [Concomitant]
     Dosage: UNK
  10. PLAVIX [Concomitant]
  11. LIPITOR [Suspect]

REACTIONS (2)
  - DIARRHOEA [None]
  - IRRITABLE BOWEL SYNDROME [None]
